FAERS Safety Report 8067426-9 (Version None)
Quarter: 2012Q1

REPORT INFORMATION
  Report Type: 
  Country: None (occurrence: None)
  Receive Date: 20120124
  Receipt Date: 20120115
  Transmission Date: 20120608
  Serious: Yes (Other)
  Sender: FDA-Public Use
  Company Number: JP-ASTRAZENECA-2012SE03101

PATIENT
  Sex: Female

DRUGS (3)
  1. IRESSA [Suspect]
     Indication: LUNG NEOPLASM MALIGNANT
     Route: 048
  2. IRESSA [Suspect]
     Route: 048
  3. IRESSA [Suspect]
     Route: 048

REACTIONS (6)
  - DYSPNOEA [None]
  - RASH [None]
  - HENOCH-SCHONLEIN PURPURA [None]
  - DIARRHOEA [None]
  - PLEURAL EFFUSION [None]
  - SKIN ULCER [None]
